FAERS Safety Report 11320160 (Version 1)
Quarter: 2015Q3

REPORT INFORMATION
  Report Type: Spontaneous
  Country: US (occurrence: None)
  Receive Date: 20150728
  Receipt Date: 20150728
  Transmission Date: 20151125
  Serious: Yes (Hospitalization)
  Sender: FDA-Public Use
  Company Number: None

PATIENT
  Age: 66 Year
  Sex: Male
  Weight: 118.8 kg

DRUGS (1)
  1. BACLOFEN. [Suspect]
     Active Substance: BACLOFEN
     Indication: MUSCLE RELAXANT THERAPY
     Route: 048
     Dates: start: 20140812, end: 20150718

REACTIONS (3)
  - Treatment noncompliance [None]
  - Mental status changes [None]
  - Multiple drug therapy [None]

NARRATIVE: CASE EVENT DATE: 20150718
